FAERS Safety Report 7942414-9 (Version None)
Quarter: 2011Q4

REPORT INFORMATION
  Report Type: 
  Country: None (occurrence: None)
  Receive Date: 20111122
  Receipt Date: 20110624
  Transmission Date: 20120403
  Serious: Yes (Other)
  Sender: FDA-Public Use
  Company Number: PHHY2011US56752

PATIENT
  Age: 30 Year
  Sex: Female

DRUGS (5)
  1. GILENYA [Suspect]
     Indication: MULTIPLE SCLEROSIS
     Dosage: 0.5 MG, QD, ORAL
     Route: 048
     Dates: start: 20110621
  2. PREDNISONE TAB [Concomitant]
  3. VITAMINS (NO INGREDIENTS/SUBSTANCES) [Concomitant]
  4. ADDERALL 10 [Concomitant]
  5. XANAX [Concomitant]

REACTIONS (9)
  - VOMITING [None]
  - HEART RATE IRREGULAR [None]
  - SENSATION OF PRESSURE [None]
  - ABDOMINAL PAIN UPPER [None]
  - CHEST DISCOMFORT [None]
  - NAUSEA [None]
  - HEART RATE DECREASED [None]
  - DYSPEPSIA [None]
  - FEELING ABNORMAL [None]
